FAERS Safety Report 25625000 (Version 2)
Quarter: 2025Q3

REPORT INFORMATION
  Report Type: Spontaneous
  Country: US (occurrence: US)
  Receive Date: 20250731
  Receipt Date: 20250804
  Transmission Date: 20251021
  Serious: No
  Sender: ALEXION PHARMACEUTICALS
  Company Number: US-AstraZeneca-CH-00915803A

PATIENT
  Sex: Male

DRUGS (2)
  1. CRESTOR [Suspect]
     Active Substance: ROSUVASTATIN CALCIUM
     Route: 065
     Dates: start: 20250712, end: 20250716
  2. HERBALS\STEVIA REBAUDIUNA LEAF [Suspect]
     Active Substance: HERBALS\STEVIA REBAUDIUNA LEAF
     Route: 065

REACTIONS (12)
  - Diarrhoea [Unknown]
  - Blood glucose increased [Unknown]
  - Blood glucose increased [Unknown]
  - Illness [Unknown]
  - Glycosylated haemoglobin increased [Unknown]
  - Unevaluable event [Unknown]
  - Blood glucose decreased [Unknown]
  - Unevaluable event [Unknown]
  - Product use issue [Unknown]
  - Panic attack [Unknown]
  - No adverse event [Unknown]
  - Therapy cessation [Unknown]
